FAERS Safety Report 5124888-4 (Version None)
Quarter: 2006Q4

REPORT INFORMATION
  Report Type: 
  Country: None (occurrence: None)
  Receive Date: 20061005
  Receipt Date: 20060925
  Transmission Date: 20070319
  Serious: Yes (Hospitalization)
  Sender: FDA-Public Use
  Company Number: WAES 0609ESP00046

PATIENT
  Age: 64 Year
  Sex: Female

DRUGS (4)
  1. COZAAR [Suspect]
     Indication: ESSENTIAL HYPERTENSION
     Dosage: 100 MG/DAILY PO
     Route: 048
     Dates: start: 20060222, end: 20060720
  2. HYDROCHLOROTHIAZIDE [Suspect]
     Indication: ESSENTIAL HYPERTENSION
     Dosage: 50 MG/DAILY PO
     Route: 048
     Dates: start: 19980101, end: 20060720
  3. ENALAPRIL MALEATE [Concomitant]
  4. METFORMIN HCL [Concomitant]

REACTIONS (2)
  - PANCREATITIS [None]
  - PH BODY FLUID DECREASED [None]
